FAERS Safety Report 10007946 (Version 3)
Quarter: 2015Q3

REPORT INFORMATION
  Report Type: Spontaneous
  Country: US (occurrence: US)
  Receive Date: 20140313
  Receipt Date: 20150814
  Transmission Date: 20151125
  Serious: No
  Sender: FDA-Public Use
  Company Number: US-GILEAD-2013-0069888

PATIENT
  Age: 53 Year
  Sex: Female

DRUGS (1)
  1. LETAIRIS [Suspect]
     Active Substance: AMBRISENTAN
     Indication: PULMONARY ARTERIAL HYPERTENSION
     Dosage: 5 MG, QD
     Route: 048
     Dates: start: 20130128, end: 20130222

REACTIONS (12)
  - Insomnia [Unknown]
  - Chest pain [Unknown]
  - Oedema [Unknown]
  - Chills [Unknown]
  - Nasal congestion [Unknown]
  - Fatigue [Unknown]
  - Rash macular [Unknown]
  - Pyrexia [Unknown]
  - Hepatic steatosis [Unknown]
  - Tremor [Unknown]
  - Flushing [Unknown]
  - Headache [Unknown]
